FAERS Safety Report 5018140-5 (Version None)
Quarter: 2006Q2

REPORT INFORMATION
  Report Type: 
  Country: None (occurrence: None)
  Receive Date: 20060605
  Receipt Date: 20060524
  Transmission Date: 20061013
  Serious: Yes (Other)
  Sender: FDA-Public Use
  Company Number: BR-JNJFOC-20060506178

PATIENT
  Age: 16 Year
  Sex: Female
  Weight: 50 kg

DRUGS (3)
  1. HALDOL [Suspect]
     Indication: SUICIDE ATTEMPT
     Route: 048
  2. BUSPIRONE HCL [Suspect]
     Indication: SUICIDE ATTEMPT
     Route: 048
  3. CLONIXIN [Suspect]
     Indication: SUICIDE ATTEMPT
     Route: 048

REACTIONS (3)
  - INTENTIONAL OVERDOSE [None]
  - SALIVARY HYPERSECRETION [None]
  - SUICIDE ATTEMPT [None]
